FAERS Safety Report 10078435 (Version 2)
Quarter: 2014Q3

REPORT INFORMATION
  Report Type: Spontaneous
  Country: FR (occurrence: FR)
  Receive Date: 20140415
  Receipt Date: 20140728
  Transmission Date: 20150326
  Serious: Yes (Other)
  Sender: FDA-Public Use
  Company Number: FR-AMGEN-FRASP2014027196

PATIENT
  Age: 64 Year
  Weight: 66 kg

DRUGS (3)
  1. SPECIAFOLDINE [Concomitant]
     Active Substance: FOLIC ACID
     Indication: PSORIATIC ARTHROPATHY
     Dosage: 5 MG, WEEKLY
     Route: 048
     Dates: start: 2011
  2. ENBREL [Suspect]
     Active Substance: ETANERCEPT
     Indication: PRODUCT USED FOR UNKNOWN INDICATION
     Dosage: UNK
     Route: 065
  3. METHOTREXATE (METHOTREXATE SODIUM) [Concomitant]
     Active Substance: METHOTREXATE SODIUM
     Indication: PSORIATIC ARTHROPATHY
     Dosage: 15 MG, WEEKLY
     Route: 048
     Dates: start: 2011

REACTIONS (1)
  - Uveitis [Recovered/Resolved]

NARRATIVE: CASE EVENT DATE: 201312
